FAERS Safety Report 8842638 (Version 1)
Quarter: 2012Q4

REPORT INFORMATION
  Report Type: 
  Country: US (occurrence: US)
  Receive Date: 20121016
  Receipt Date: 20121016
  Transmission Date: 20130627
  Serious: No
  Sender: FDA-Public Use
  Company Number: US-PFIZER INC-2012252174

PATIENT
  Age: 71 Year
  Sex: Male
  Weight: 92.52 kg

DRUGS (3)
  1. LATANOPROST [Suspect]
     Indication: GLAUCOMA
     Dosage: 1 Gtt, at bed time daily
     Route: 031
  2. VYTORIN [Concomitant]
     Indication: BLOOD CHOLESTEROL INCREASED
     Dosage: UNK
  3. METOPROLOL [Concomitant]
     Indication: GLAUCOMA
     Dosage: 1 Gtt,daily

REACTIONS (1)
  - Eye irritation [Unknown]
